FAERS Safety Report 7602154-2 (Version None)
Quarter: 2011Q3

REPORT INFORMATION
  Report Type: 
  Country: None (occurrence: None)
  Receive Date: 20110711
  Receipt Date: 20110629
  Transmission Date: 20111222
  Serious: Yes (Death, Hospitalization, Other)
  Sender: FDA-Public Use
  Company Number: ES-ELI_LILLY_AND_COMPANY-ES201106004401

PATIENT
  Sex: Female
  Weight: 50 kg

DRUGS (7)
  1. AFLOYAN [Concomitant]
     Dosage: UNK, UNKNOWN
     Route: 048
  2. ASPIRIN [Concomitant]
     Indication: CARDIOVASCULAR DISORDER
     Dosage: UNK, QD
     Route: 048
  3. ENALAPRIL MALEATE [Concomitant]
     Indication: HYPERTENSION
     Dosage: UNK, QD
     Route: 048
  4. NEURONTIN [Concomitant]
     Dosage: UNK, UNKNOWN
     Route: 048
  5. FORTEO [Suspect]
     Indication: OSTEOPOROSIS
     Dosage: 20 MG, QD
     Route: 058
     Dates: start: 20110201, end: 20110601
  6. AMLODIPINO                         /00972401/ [Concomitant]
     Indication: HYPERTENSION
     Dosage: UNK, QD
     Route: 048
  7. ZYPREXA [Concomitant]
     Indication: SCHIZOPHRENIA

REACTIONS (1)
  - HEPATIC NEOPLASM MALIGNANT [None]
